FAERS Safety Report 12645815 (Version 1)
Quarter: 2016Q3

REPORT INFORMATION
  Report Type: Spontaneous
  Country: BR (occurrence: BR)
  Receive Date: 20160811
  Receipt Date: 20160811
  Transmission Date: 20161109
  Serious: Yes (Other)
  Sender: FDA-Public Use
  Company Number: PHHY2016BR020571

PATIENT
  Age: 9 Year
  Sex: Female
  Weight: 34 kg

DRUGS (2)
  1. TRILEPTAL [Suspect]
     Active Substance: OXCARBAZEPINE
     Indication: SEIZURE
     Dosage: 7 ML, Q12H
     Route: 048
  2. TRILEPTAL [Suspect]
     Active Substance: OXCARBAZEPINE
     Dosage: 7 ML, Q12H
     Route: 048
     Dates: start: 201511

REACTIONS (1)
  - Seizure [Recovering/Resolving]
